FAERS Safety Report 15232078 (Version 1)
Quarter: 2018Q3

REPORT INFORMATION
  Report Type: Spontaneous
  Country: US (occurrence: US)
  Receive Date: 20180802
  Receipt Date: 20180802
  Transmission Date: 20181010
  Serious: No
  Sender: FDA-Public Use
  Company Number: US-PFIZER INC-2018308798

PATIENT
  Age: 40 Year
  Sex: Female
  Weight: 52.16 kg

DRUGS (1)
  1. GABAPENTIN. [Suspect]
     Active Substance: GABAPENTIN
     Indication: EPILEPSY
     Dosage: UNK

REACTIONS (4)
  - Drug ineffective [Unknown]
  - Anger [Unknown]
  - Weight decreased [Unknown]
  - Malaise [Unknown]
